FAERS Safety Report 7082254-9 (Version None)
Quarter: 2010Q4

REPORT INFORMATION
  Report Type: 
  Country: None (occurrence: None)
  Receive Date: 20101104
  Receipt Date: 20101026
  Transmission Date: 20110411
  Serious: Yes (Hospitalization)
  Sender: FDA-Public Use
  Company Number: US-BIOGENIDEC-2010BI029520

PATIENT
  Age: 54 Year
  Sex: Female

DRUGS (1)
  1. TYSABRI [Suspect]
     Indication: MULTIPLE SCLEROSIS
     Route: 042
     Dates: start: 20080507

REACTIONS (7)
  - ARTHRITIS [None]
  - ARTHROPATHY [None]
  - BACK PAIN [None]
  - GAIT DISTURBANCE [None]
  - INITIAL INSOMNIA [None]
  - KNEE ARTHROPLASTY [None]
  - MIDDLE INSOMNIA [None]
